FAERS Safety Report 21259844 (Version 1)
Quarter: 2022Q3

REPORT INFORMATION
  Report Type: Spontaneous
  Country: US (occurrence: None)
  Receive Date: 20220825
  Receipt Date: 20220825
  Transmission Date: 20221026
  Serious: Yes (Other)
  Sender: FDA-Public Use
  Company Number: None

PATIENT
  Age: 82 Year
  Sex: Female

DRUGS (13)
  1. AMBRISENTAN [Suspect]
     Active Substance: AMBRISENTAN
     Indication: Pulmonary arterial hypertension
     Dosage: FREQUENCY : DAILY;?
     Route: 048
     Dates: start: 20201203
  2. SILDENAFIL [Concomitant]
     Active Substance: SILDENAFIL
  3. CALCITRIOL [Concomitant]
     Active Substance: CALCITRIOL
  4. REMERON [Concomitant]
     Active Substance: MIRTAZAPINE
  5. PRADAXA [Concomitant]
     Active Substance: DABIGATRAN ETEXILATE MESYLATE
  6. K-TAB [Concomitant]
     Active Substance: POTASSIUM CHLORIDE
  7. METOLAZONE [Concomitant]
     Active Substance: METOLAZONE
  8. LASIX [Concomitant]
     Active Substance: FUROSEMIDE
  9. METOPROLOL [Concomitant]
     Active Substance: METOPROLOL
  10. atorvastation [Concomitant]
  11. triamcinolone top oint [Concomitant]
  12. ASCORBIC ACID\IRON [Concomitant]
     Active Substance: ASCORBIC ACID\IRON
  13. calcium carbonate w/ vit D [Concomitant]

REACTIONS (3)
  - Haematochezia [None]
  - Haemorrhoids [None]
  - Urinary tract infection [None]

NARRATIVE: CASE EVENT DATE: 20220819
